FAERS Safety Report 21363801 (Version 3)
Quarter: 2022Q4

REPORT INFORMATION
  Report Type: Spontaneous
  Country: US (occurrence: US)
  Receive Date: 20220922
  Receipt Date: 20221219
  Transmission Date: 20230112
  Serious: No
  Sender: FDA-Public Use
  Company Number: US-NOVARTISTESTPH-NVSC2022US212553

PATIENT
  Sex: Female

DRUGS (1)
  1. ALBUTEROL SULFATE [Suspect]
     Active Substance: ALBUTEROL SULFATE
     Indication: Asthma
     Dosage: UNK, QD, 2 PUFFS (90 MCG/DOS)
     Route: 048

REACTIONS (4)
  - Dyspnoea [Unknown]
  - Product availability issue [Not Recovered/Not Resolved]
  - Device defective [Unknown]
  - Off label use [Not Recovered/Not Resolved]
